FAERS Safety Report 19111664 (Version 1)
Quarter: 2021Q2

REPORT INFORMATION
  Report Type: Spontaneous
  Country: GB (occurrence: GB)
  Receive Date: 20210408
  Receipt Date: 20210408
  Transmission Date: 20210717
  Serious: Yes (Life-Threatening, Other)
  Sender: FDA-Public Use
  Company Number: GB-PFIZER INC-2021354718

PATIENT
  Sex: Female

DRUGS (4)
  1. MORPHINE SULFATE. [Concomitant]
     Active Substance: MORPHINE SULFATE
     Indication: ILL-DEFINED DISORDER
  2. MOVICOL [Concomitant]
     Active Substance: POLYETHYLENE GLYCOL 3350\POTASSIUM CHLORIDE\SODIUM BICARBONATE\SODIUM CHLORIDE
     Indication: ILL-DEFINED DISORDER
     Dosage: UNK
  3. SULFASALAZINE. [Suspect]
     Active Substance: SULFASALAZINE
     Indication: RHEUMATOID ARTHRITIS
     Dosage: 500MG BID THEN TID THEN REDUCED TO BID
     Route: 048
     Dates: start: 20200217, end: 20200321
  4. SENNA ACUTIFOLIA [Concomitant]
     Indication: ILL-DEFINED DISORDER

REACTIONS (4)
  - Vision blurred [Unknown]
  - Suicide attempt [Recovered/Resolved]
  - Memory impairment [Unknown]
  - Multiple injuries [Recovering/Resolving]

NARRATIVE: CASE EVENT DATE: 20200321
